FAERS Safety Report 20571969 (Version 2)
Quarter: 2022Q3

REPORT INFORMATION
  Report Type: Spontaneous
  Country: GB (occurrence: GB)
  Receive Date: 20220309
  Receipt Date: 20220713
  Transmission Date: 20221026
  Serious: Yes (Other)
  Sender: FDA-Public Use
  Company Number: GB-GSKCCFEMEA-Case-01438066_AE-55562

PATIENT

DRUGS (2)
  1. LAMOTRIGINE [Suspect]
     Active Substance: LAMOTRIGINE
     Indication: Epilepsy
     Dosage: 50 MG, BID
  2. AMOXICILLIN [Suspect]
     Active Substance: AMOXICILLIN
     Indication: Product used for unknown indication
     Dosage: UNK

REACTIONS (7)
  - Drug reaction with eosinophilia and systemic symptoms [Unknown]
  - Erythema [Unknown]
  - Swelling face [Unknown]
  - Blister [Unknown]
  - Dry skin [Unknown]
  - Dermatitis contact [Unknown]
  - Reaction to excipient [Unknown]
